FAERS Safety Report 19427360 (Version 4)
Quarter: 2021Q3

REPORT INFORMATION
  Report Type: Report from Study
  Country: CA (occurrence: CA)
  Receive Date: 20210616
  Receipt Date: 20210802
  Transmission Date: 20211014
  Serious: Yes (Other)
  Sender: FDA-Public Use
  Company Number: CA-TAKEDA-2021TUS016813

PATIENT
  Age: 58 Year
  Sex: Male

DRUGS (3)
  1. VEDOLIZUMAB [Suspect]
     Active Substance: VEDOLIZUMAB
     Dosage: 300 MILLIGRAM
     Route: 042
  2. VEDOLIZUMAB [Suspect]
     Active Substance: VEDOLIZUMAB
     Dosage: 300 MILLIGRAM, Q4WEEKS
     Route: 042
     Dates: start: 20210618
  3. VEDOLIZUMAB [Suspect]
     Active Substance: VEDOLIZUMAB
     Indication: COLITIS ULCERATIVE
     Dosage: 300 MILLIGRAM
     Route: 042
     Dates: start: 20201215

REACTIONS (3)
  - Drug level decreased [Unknown]
  - Off label use [Unknown]
  - Colitis ulcerative [Unknown]

NARRATIVE: CASE EVENT DATE: 20210618
